FAERS Safety Report 4597388-8 (Version None)
Quarter: 2005Q1

REPORT INFORMATION
  Report Type: 
  Country: None (occurrence: None)
  Receive Date: 20050303
  Receipt Date: 20041117
  Transmission Date: 20050727
  Serious: No
  Sender: FDA-Public Use
  Company Number: US-GLAXOSMITHKLINE-A0534334A

PATIENT
  Age: 57 Year
  Sex: Male

DRUGS (2)
  1. REQUIP [Suspect]
     Indication: PARKINSON'S DISEASE
     Dosage: 1MG PER DAY
     Route: 048
     Dates: start: 20041001
  2. NO CONCURRENT MEDICATION [Concomitant]

REACTIONS (1)
  - NAUSEA [None]
